FAERS Safety Report 11990430 (Version 1)
Quarter: 2016Q1

REPORT INFORMATION
  Report Type: Spontaneous
  Country: US (occurrence: US)
  Receive Date: 20160202
  Receipt Date: 20160202
  Transmission Date: 20160526
  Serious: No
  Sender: FDA-Public Use
  Company Number: US-PFIZER INC-2016054883

PATIENT
  Sex: Male

DRUGS (1)
  1. SUTENT [Suspect]
     Active Substance: SUNITINIB MALATE
     Indication: RENAL CELL CARCINOMA
     Dosage: 50 MG, DAILY

REACTIONS (9)
  - Diarrhoea [Unknown]
  - Gastrointestinal disorder [Unknown]
  - Skin disorder [Unknown]
  - Anorectal discomfort [Unknown]
  - Nausea [Unknown]
  - Restlessness [Unknown]
  - Dyspepsia [Unknown]
  - Abdominal discomfort [Unknown]
  - Skin irritation [Unknown]
